FAERS Safety Report 23128312 (Version 2)
Quarter: 2024Q2

REPORT INFORMATION
  Report Type: Report from Study
  Country: DE (occurrence: DE)
  Receive Date: 20231031
  Receipt Date: 20240417
  Transmission Date: 20240716
  Serious: Yes (Hospitalization, Other)
  Sender: FDA-Public Use
  Company Number: DE-MYLANLABS-2023M1056905

PATIENT
  Age: 8 Decade
  Sex: Female

DRUGS (22)
  1. SIMPONI [Suspect]
     Active Substance: GOLIMUMAB
     Indication: Rheumatoid arthritis
     Dosage: 50 MILLIGRAM
     Route: 058
     Dates: start: 201609, end: 201707
  2. METHOTREXATE [Suspect]
     Active Substance: METHOTREXATE
     Indication: Rheumatoid arthritis
     Dosage: 27.5 MILLIGRAM
     Route: 065
  3. METHOTREXATE [Suspect]
     Active Substance: METHOTREXATE
     Dosage: DOSE-7,5/LEF 10, DOSE-10,0/LEF 10
     Route: 065
     Dates: start: 20160905
  4. METHOTREXATE [Suspect]
     Active Substance: METHOTREXATE
     Dosage: 27.5 MILLIGRAM
     Route: 065
     Dates: start: 20171016
  5. METHOTREXATE [Suspect]
     Active Substance: METHOTREXATE
     Dosage: 7.5 MILLIGRAM
     Route: 065
     Dates: start: 20180924
  6. METHOTREXATE [Suspect]
     Active Substance: METHOTREXATE
     Dosage: 7.5 MILLIGRAM
     Route: 065
     Dates: start: 20190411
  7. METHOTREXATE [Suspect]
     Active Substance: METHOTREXATE
     Dosage: 7.5 MILLIGRAM
     Route: 065
     Dates: start: 20180423
  8. METHOTREXATE [Suspect]
     Active Substance: METHOTREXATE
     Dosage: 7.5 MILLIGRAM
     Route: 065
     Dates: start: 20191008
  9. METHOTREXATE [Suspect]
     Active Substance: METHOTREXATE
     Dosage: 10 MILLIGRAM
     Route: 065
     Dates: start: 20220817
  10. METHOTREXATE [Suspect]
     Active Substance: METHOTREXATE
     Dosage: 10 MILLIGRAM
     Route: 065
     Dates: start: 20220412
  11. METHOTREXATE [Suspect]
     Active Substance: METHOTREXATE
     Dosage: 7.5 MILLIGRAM
     Route: 065
     Dates: start: 20210614
  12. METHOTREXATE [Suspect]
     Active Substance: METHOTREXATE
     Dosage: 10 MILLIGRAM
     Route: 065
     Dates: start: 20211015
  13. METHOTREXATE [Suspect]
     Active Substance: METHOTREXATE
     Dosage: 10 MILLIGRAM
     Route: 065
     Dates: start: 20230131
  14. METHOTREXATE [Suspect]
     Active Substance: METHOTREXATE
     Dosage: 7.5 MILLIGRAM
     Route: 065
     Dates: start: 20200128
  15. LEFLUNOMIDE [Suspect]
     Active Substance: LEFLUNOMIDE
     Indication: Rheumatoid arthritis
     Dosage: 10 MILLIGRAM
     Route: 065
     Dates: start: 20220817
  16. LEFLUNOMIDE [Suspect]
     Active Substance: LEFLUNOMIDE
     Dosage: 10 MILLIGRAM
     Route: 065
     Dates: start: 20230131
  17. LEFLUNOMIDE [Suspect]
     Active Substance: LEFLUNOMIDE
     Dosage: 10 MILLIGRAM
     Route: 065
     Dates: start: 20200128
  18. LEFLUNOMIDE [Suspect]
     Active Substance: LEFLUNOMIDE
     Dosage: 10 MILLIGRAM
     Route: 065
     Dates: start: 20211015
  19. LEFLUNOMIDE [Suspect]
     Active Substance: LEFLUNOMIDE
     Dosage: 10 MILLIGRAM
     Route: 065
     Dates: start: 20220412
  20. LEFLUNOMIDE [Suspect]
     Active Substance: LEFLUNOMIDE
     Dosage: 10 MILLIGRAM
     Route: 065
     Dates: start: 20191008
  21. LEFLUNOMIDE [Suspect]
     Active Substance: LEFLUNOMIDE
     Dosage: 10 MILLIGRAM
     Route: 065
     Dates: start: 20210614
  22. ORENCIA [Suspect]
     Active Substance: ABATACEPT
     Indication: Rheumatoid arthritis
     Dosage: 125 MILLIGRAM
     Route: 065
     Dates: start: 201807, end: 201812

REACTIONS (8)
  - Cataract [Unknown]
  - Cataract [Unknown]
  - Polyneuropathy [Unknown]
  - Osteoporosis [Unknown]
  - Arthralgia [Not Recovered/Not Resolved]
  - Osteomyelitis [Not Recovered/Not Resolved]
  - Tendon rupture [Not Recovered/Not Resolved]
  - Periarthritis calcarea [Not Recovered/Not Resolved]

NARRATIVE: CASE EVENT DATE: 20211108
